FAERS Safety Report 7914021-5 (Version None)
Quarter: 2011Q4

REPORT INFORMATION
  Report Type: 
  Country: None (occurrence: None)
  Receive Date: 20111115
  Receipt Date: 20111103
  Transmission Date: 20120403
  Serious: Yes (Hospitalization, Other)
  Sender: FDA-Public Use
  Company Number: US-BAYER-2010-006304

PATIENT
  Age: 40 Year
  Sex: Female

DRUGS (9)
  1. AMOXICILLIN [Concomitant]
     Dosage: 875 MG, UNK
     Route: 048
     Dates: start: 20081030
  2. IBUPROFEN (ADVIL) [Concomitant]
     Dosage: UNK UNK, PRN
     Route: 048
  3. CYMBALTA [Concomitant]
     Indication: DEPRESSION
     Dosage: 60 MG, UNK
     Route: 048
     Dates: start: 20080125, end: 20080803
  4. BENADRYL [Concomitant]
     Dosage: UNK
     Route: 048
     Dates: start: 20080101
  5. YASMIN [Suspect]
     Indication: PREMENSTRUAL SYNDROME
     Dosage: UNK
     Route: 048
     Dates: start: 20050601, end: 20081201
  6. DROSPIRENONE AND ETHINYL ESTRADIOL [Suspect]
     Indication: PREMENSTRUAL SYNDROME
     Dosage: UNK
     Route: 048
     Dates: start: 20050601, end: 20081201
  7. LISINOPRIL [Concomitant]
     Dosage: UNK
     Route: 048
     Dates: start: 20080101, end: 20090101
  8. PREDNISONE [Concomitant]
     Indication: HYPERSENSITIVITY
     Dosage: 4 MG, UNK
     Route: 048
     Dates: start: 20081030
  9. CLOVEN [Concomitant]
     Dosage: UNK
     Route: 055
     Dates: start: 20081101

REACTIONS (6)
  - DEEP VEIN THROMBOSIS [None]
  - PULMONARY EMBOLISM [None]
  - ANXIETY [None]
  - PAIN [None]
  - EMOTIONAL DISTRESS [None]
  - INJURY [None]
